FAERS Safety Report 16584511 (Version 1)
Quarter: 2019Q3

REPORT INFORMATION
  Report Type: Report from Study
  Country: ES (occurrence: ES)
  Receive Date: 20190717
  Receipt Date: 20190717
  Transmission Date: 20191004
  Serious: Yes (Hospitalization)
  Sender: FDA-Public Use
  Company Number: ES-ROCHE-2131808

PATIENT
  Age: 61 Year
  Sex: Male
  Weight: 86.6 kg

DRUGS (11)
  1. AMOXICILLIN/CLAVULANIC ACID [Concomitant]
     Active Substance: AMOXICILLIN\CLAVULANIC ACID
     Indication: PROPHYLAXIS
     Route: 065
     Dates: end: 20180827
  2. AMOXICILLIN/CLAVULANIC ACID [Concomitant]
     Active Substance: AMOXICILLIN\CLAVULANIC ACID
     Indication: HYPOTENSION
     Route: 065
     Dates: end: 20180612
  3. ACETAMINOPHEN. [Concomitant]
     Active Substance: ACETAMINOPHEN
     Indication: PAIN
  4. TRANEXAMIC ACID. [Concomitant]
     Active Substance: TRANEXAMIC ACID
     Indication: HAEMOPTYSIS
     Route: 065
     Dates: end: 20180722
  5. LEVOFLOXACIN. [Concomitant]
     Active Substance: LEVOFLOXACIN
     Route: 042
  6. COBIMETINIB. [Suspect]
     Active Substance: COBIMETINIB
     Indication: MALIGNANT MELANOMA
     Dosage: DATE OF MOST RECENT DOSE OF COBIMETINIB PRIOR TO AE/SAE ONSET 28/MAY/2018 (60 MG)
     Route: 048
     Dates: start: 20180517
  7. OXYTETRACYCLINE [Concomitant]
     Active Substance: OXYTETRACYCLINE
     Indication: RASH MACULO-PAPULAR
     Route: 061
     Dates: start: 201811, end: 20181207
  8. AMOXICILINA [AMOXICILLIN] [Concomitant]
     Indication: WISDOM TEETH REMOVAL
     Route: 048
     Dates: start: 201811, end: 201811
  9. ATEZOLIZUMAB. [Suspect]
     Active Substance: ATEZOLIZUMAB
     Indication: MALIGNANT MELANOMA
     Dosage: DATE OF MOST RECENT DOSE OF ATEZOLIZUMAB PRIOR TO AE ONSET: 17/MAY/2018
     Route: 042
     Dates: start: 20180517
  10. MEROPENEM. [Concomitant]
     Active Substance: MEROPENEM
  11. PREDNISONE. [Concomitant]
     Active Substance: PREDNISONE
     Indication: COUGH
     Route: 048
     Dates: start: 201807, end: 201807

REACTIONS (1)
  - Hypotension [Recovered/Resolved]

NARRATIVE: CASE EVENT DATE: 20180528
